FAERS Safety Report 4491666-9 (Version None)
Quarter: 2004Q4

REPORT INFORMATION
  Report Type: 
  Country: None (occurrence: None)
  Receive Date: 20041103
  Receipt Date: 20041022
  Transmission Date: 20050328
  Serious: Yes (Other)
  Sender: FDA-Public Use
  Company Number: HK-BRISTOL-MYERS SQUIBB COMPANY-12748885

PATIENT
  Age: 33 Year
  Sex: Female

DRUGS (2)
  1. EFAVIRENZ CAPS [Suspect]
     Indication: HIV INFECTION
  2. COMBIVIR [Concomitant]

REACTIONS (1)
  - HYPERTHYROIDISM [None]
